FAERS Safety Report 4906084-6 (Version None)
Quarter: 2006Q1

REPORT INFORMATION
  Report Type: 
  Country: None (occurrence: None)
  Receive Date: 20060209
  Receipt Date: 20060131
  Transmission Date: 20060701
  Serious: Yes (Other)
  Sender: FDA-Public Use
  Company Number: US-BOEHRINGER INGELHEIM PHARMACEUTICALS, INC.-2006-DE-00512GD

PATIENT
  Age: 40 Year
  Sex: Female

DRUGS (2)
  1. MEXILETINE HYDROCHLORIDE [Suspect]
     Indication: TORSADE DE POINTES
     Route: 042
  2. PROPRANOLOL [Suspect]
     Indication: TORSADE DE POINTES
     Route: 042

REACTIONS (1)
  - DRUG INEFFECTIVE [None]
